FAERS Safety Report 6192589-X (Version None)
Quarter: 2009Q2

REPORT INFORMATION
  Report Type: 
  Country: None (occurrence: None)
  Receive Date: 20090513
  Receipt Date: 20090513
  Transmission Date: 20091009
  Serious: Yes (Hospitalization)
  Sender: FDA-Public Use
  Company Number: None

PATIENT
  Age: 59 Year
  Sex: Female
  Weight: 65.7716 kg

DRUGS (1)
  1. CIPROFLOXACIN [Suspect]
     Indication: CYSTITIS
     Dosage: 1 TABLET 2XS A DAY
     Dates: start: 20090314, end: 20090317

REACTIONS (4)
  - CONFUSIONAL STATE [None]
  - EXTRASYSTOLES [None]
  - HEART RATE IRREGULAR [None]
  - PALPITATIONS [None]
